FAERS Safety Report 5812034-0 (Version None)
Quarter: 2008Q3

REPORT INFORMATION
  Report Type: 
  Country: None (occurrence: None)
  Receive Date: 20080716
  Receipt Date: 20080708
  Transmission Date: 20090109
  Serious: Yes (Hospitalization, Other)
  Sender: FDA-Public Use
  Company Number: PHHY2008BR13551

PATIENT
  Age: 25 Year
  Sex: Male

DRUGS (4)
  1. TEGRETOL [Suspect]
     Dosage: 84 TABLETS
     Route: 048
  2. BIPERIDEN HYDROCHLORIDE TAB [Suspect]
     Dosage: 15 TABLETS
  3. HALOPERIDOL [Suspect]
     Dosage: 20 TABLETS
  4. AMITRIPTYLINE HCL [Suspect]
     Dosage: 38 TABLETS

REACTIONS (13)
  - ASPIRATION [None]
  - CONFUSIONAL STATE [None]
  - CORNEAL REFLEX DECREASED [None]
  - DEPRESSED LEVEL OF CONSCIOUSNESS [None]
  - EXTRAPYRAMIDAL DISORDER [None]
  - GASTRIC LAVAGE [None]
  - GLASGOW COMA SCALE ABNORMAL [None]
  - HYPOTENSION [None]
  - MECHANICAL VENTILATION [None]
  - PHOTOSENSITIVITY REACTION [None]
  - PUPILLARY LIGHT REFLEX TESTS NORMAL [None]
  - SNORING [None]
  - SUICIDE ATTEMPT [None]
